FAERS Safety Report 25983872 (Version 1)
Quarter: 2025Q4

REPORT INFORMATION
  Report Type: Spontaneous
  Country: US (occurrence: US)
  Receive Date: 20251031
  Receipt Date: 20251031
  Transmission Date: 20260118
  Serious: No
  Sender: MYLAN
  Company Number: US-MYLANLABS-2025M1086631

PATIENT
  Sex: Female

DRUGS (2)
  1. ESTRADIOL TRANSDERMAL SYSTEM [Suspect]
     Active Substance: ESTRADIOL
     Indication: Infertility female
     Dosage: 0.1 MILLIGRAM, QD (PER DAY, FOUR PATCHES EVERY OTHER DAY)
     Dates: start: 20250924
  2. ESTRADIOL TRANSDERMAL SYSTEM [Suspect]
     Active Substance: ESTRADIOL
     Dosage: 0.1 MILLIGRAM, QD (PER DAY, FOUR PATCHES EVERY OTHER DAY)
     Dates: start: 20251006

REACTIONS (3)
  - Off label use [Unknown]
  - Incorrect dosage administered [Unknown]
  - Product odour abnormal [Unknown]

NARRATIVE: CASE EVENT DATE: 20250924
